FAERS Safety Report 7564854-2 (Version None)
Quarter: 2011Q2

REPORT INFORMATION
  Report Type: 
  Country: None (occurrence: None)
  Receive Date: 20110622
  Receipt Date: 20110214
  Transmission Date: 20111010
  Serious: Yes (Other)
  Sender: FDA-Public Use
  Company Number: US-MYLANLABS-2011S1000532

PATIENT
  Age: 22 Year
  Sex: Male
  Weight: 104.33 kg

DRUGS (11)
  1. CLOZAPINE [Suspect]
     Indication: POST-TRAUMATIC STRESS DISORDER
     Dates: start: 20090501, end: 20110122
  2. CLOZAPINE [Suspect]
     Indication: PSYCHOTIC DISORDER
     Dates: start: 20090501, end: 20110122
  3. HYDROCHLOROTHIAZIDE [Concomitant]
  4. MIRTAZAPINE [Concomitant]
  5. LISINOPRIL [Concomitant]
     Dates: start: 20110125
  6. POTASSIUM CHLORIDE [Concomitant]
  7. BENZTROPINE MESYLATE [Concomitant]
  8. TRAZODONE HCL [Concomitant]
  9. LORAZEPAM [Concomitant]
     Dates: start: 20101101
  10. PRAZOSIN HCL [Concomitant]
  11. SIMVASTATIN [Concomitant]

REACTIONS (1)
  - GRANULOCYTOPENIA [None]
